FAERS Safety Report 7763905-X (Version None)
Quarter: 2011Q3

REPORT INFORMATION
  Report Type: 
  Country: None (occurrence: None)
  Receive Date: 20110921
  Receipt Date: 20110909
  Transmission Date: 20111222
  Serious: Yes (Hospitalization, Other)
  Sender: FDA-Public Use
  Company Number: IE-JNJFOC-20110605328

PATIENT
  Sex: Female

DRUGS (3)
  1. REMICADE [Suspect]
     Indication: CROHN'S DISEASE
     Route: 042
     Dates: start: 20110301
  2. ANTI-TUBERCULOSIS DRUG (NOS) [Suspect]
     Indication: TUBERCULOSIS
     Route: 065
  3. MERCAPTOPURINE [Suspect]
     Indication: CROHN'S DISEASE
     Route: 065
     Dates: start: 20110301

REACTIONS (4)
  - PNEUMOCYSTIS JIROVECI PNEUMONIA [None]
  - TUBERCULOSIS [None]
  - SEPSIS [None]
  - HEPATIC FAILURE [None]
